FAERS Safety Report 13418088 (Version 2)
Quarter: 2017Q2

REPORT INFORMATION
  Report Type: Report from Study
  Country: US (occurrence: US)
  Receive Date: 20170407
  Receipt Date: 20170512
  Transmission Date: 20170830
  Serious: Yes (Hospitalization, Other)
  Sender: FDA-Public Use
  Company Number: US-BRISTOL-MYERS SQUIBB COMPANY-BMS-2017-027202

PATIENT
  Age: 34 Year
  Sex: Female

DRUGS (5)
  1. SINGULAIR [Suspect]
     Active Substance: MONTELUKAST SODIUM
     Indication: ASTHMA
     Dosage: 10 MG, UNK
     Route: 065
     Dates: start: 20090517
  2. PROAIR HFA [Suspect]
     Active Substance: ALBUTEROL SULFATE
     Indication: ASTHMA
     Dosage: 1 DF, PRN
     Route: 065
     Dates: start: 20090517
  3. ADVAIR HFA [Suspect]
     Active Substance: FLUTICASONE PROPIONATE\SALMETEROL XINAFOATE
     Indication: ASTHMA
     Dosage: 1 DF, UNK
     Route: 065
     Dates: start: 20090517
  4. ZYRTEC [Suspect]
     Active Substance: CETIRIZINE HYDROCHLORIDE
     Indication: HYPERSENSITIVITY
     Dosage: 10 MG, UNK
     Route: 065
     Dates: start: 20090517
  5. ARIPIPRAZOLE. [Suspect]
     Active Substance: ARIPIPRAZOLE
     Indication: BIPOLAR DISORDER
     Dosage: 2 MG, UNK
     Route: 065
     Dates: start: 20090517

REACTIONS (10)
  - Nausea [Unknown]
  - Maternal exposure during pregnancy [Recovered/Resolved]
  - Obesity [Unknown]
  - Live birth [Unknown]
  - Induced labour [Unknown]
  - Product use issue [Unknown]
  - Prescribed underdose [Unknown]
  - Asthma [Not Recovered/Not Resolved]
  - Gestational hypertension [Recovered/Resolved]
  - Vomiting in pregnancy [Unknown]

NARRATIVE: CASE EVENT DATE: 200912
